FAERS Safety Report 14870504 (Version 2)
Quarter: 2018Q2

REPORT INFORMATION
  Report Type: Report from Study
  Country: NL (occurrence: NL)
  Receive Date: 20180509
  Receipt Date: 20180605
  Transmission Date: 20180711
  Serious: Yes (Hospitalization)
  Sender: FDA-Public Use
  Company Number: NL-TEVA-2018-NL-889673

PATIENT
  Age: 69 Year
  Sex: Male
  Weight: 75 kg

DRUGS (16)
  1. ROACTEMRA [Suspect]
     Active Substance: TOCILIZUMAB
     Dosage: Q4W
     Route: 042
     Dates: start: 20120327
  2. ROACTEMRA [Suspect]
     Active Substance: TOCILIZUMAB
     Dosage: LAST DOSE PIOR TO EVENT WAS RECEIVED ON 15/MAR/2016
     Route: 042
     Dates: start: 20130731
  3. ROACTEMRA [Suspect]
     Active Substance: TOCILIZUMAB
     Dosage: QMO
     Route: 042
     Dates: start: 20151222
  4. ROACTEMRA [Suspect]
     Active Substance: TOCILIZUMAB
     Dosage: QMO
     Route: 042
     Dates: start: 20160217
  5. CELECOXIB. [Suspect]
     Active Substance: CELECOXIB
     Dosage: 200 MILLIGRAM DAILY;
     Route: 048
     Dates: start: 20130226
  6. BISOPROLOL [Concomitant]
     Active Substance: BISOPROLOL
     Indication: HYPERTENSION
     Dosage: 5 MILLIGRAM DAILY; 5 MG, QD
     Route: 048
     Dates: start: 20051024
  7. OMEPRAZOL [Concomitant]
     Active Substance: OMEPRAZOLE
     Indication: PROPHYLAXIS
     Dosage: 40 MILLIGRAM DAILY; 40 MG, QD
     Route: 048
     Dates: start: 20010521
  8. PARACETAMOL [Concomitant]
     Active Substance: ACETAMINOPHEN
     Dosage: 1000 MILLIGRAM DAILY;
     Route: 048
  9. CELECOXIB. [Suspect]
     Active Substance: CELECOXIB
     Indication: RHEUMATOID ARTHRITIS
     Dosage: 600 MG, QMO
     Route: 042
     Dates: start: 20151222
  10. CELECOXIB. [Suspect]
     Active Substance: CELECOXIB
     Dosage: 400 MILLIGRAM DAILY;
     Route: 048
     Dates: start: 20130226
  11. ROACTEMRA [Suspect]
     Active Substance: TOCILIZUMAB
     Route: 042
     Dates: start: 20160119
  12. ACETAMINOPHEN. [Suspect]
     Active Substance: ACETAMINOPHEN
     Indication: RHEUMATOID ARTHRITIS
     Dosage: 1000 MILLIGRAM DAILY; 3000 MG, QD
     Route: 048
     Dates: start: 20130226
  13. ROACTEMRA [Suspect]
     Active Substance: TOCILIZUMAB
     Dates: start: 20160315
  14. ACETYLSALICYLIC ACID [Concomitant]
     Active Substance: ASPIRIN
     Indication: MYOCARDIAL INFARCTION
     Dosage: 80 MILLIGRAM DAILY;  QD
     Route: 048
     Dates: start: 20051024
  15. ROACTEMRA [Suspect]
     Active Substance: TOCILIZUMAB
     Dosage: QMO
     Route: 042
     Dates: start: 20160305
  16. ATORVASTATIN [Concomitant]
     Active Substance: ATORVASTATIN
     Dosage: 20 MILLIGRAM DAILY; 20 MG, QD
     Route: 048
     Dates: start: 20051024

REACTIONS (2)
  - Wound infection [Recovered/Resolved]
  - Localised infection [Recovered/Resolved]

NARRATIVE: CASE EVENT DATE: 20160415
